FAERS Safety Report 7593605-0 (Version None)
Quarter: 2011Q3

REPORT INFORMATION
  Report Type: 
  Country: None (occurrence: None)
  Receive Date: 20110706
  Receipt Date: 20110629
  Transmission Date: 20111222
  Serious: Yes (Other)
  Sender: FDA-Public Use
  Company Number: PHHY2011SE58682

PATIENT
  Sex: Male

DRUGS (1)
  1. TRAMADOL HEXAL [Suspect]
     Indication: PAIN
     Route: 048

REACTIONS (4)
  - DEPRESSION [None]
  - FATIGUE [None]
  - MENTAL DISORDER [None]
  - PAIN [None]
